FAERS Safety Report 15865944 (Version 1)
Quarter: 2019Q1

REPORT INFORMATION
  Report Type: Spontaneous
  Country: US (occurrence: US)
  Receive Date: 20190125
  Receipt Date: 20190125
  Transmission Date: 20190417
  Serious: No
  Sender: FDA-Public Use
  Company Number: US-SERB S.A.S.-2061745

PATIENT
  Age: 72 Year
  Sex: Female

DRUGS (1)
  1. CYANOKIT [Suspect]
     Active Substance: HYDROXOCOBALAMIN
     Indication: CARBON MONOXIDE POISONING
     Route: 042

REACTIONS (1)
  - Product use in unapproved indication [Unknown]
